FAERS Safety Report 9297452 (Version 1)
Quarter: 2013Q2

REPORT INFORMATION
  Report Type: Spontaneous
  Country: DK (occurrence: DK)
  Receive Date: 20130520
  Receipt Date: 20130520
  Transmission Date: 20140414
  Serious: Yes (Other)
  Sender: FDA-Public Use
  Company Number: DK-ROCHE-1224382

PATIENT
  Sex: Female

DRUGS (10)
  1. HERCEPTIN [Suspect]
     Indication: BREAST CANCER
     Route: 065
  2. XELODA [Suspect]
     Indication: BREAST CANCER
     Route: 065
  3. TAXOTERE [Suspect]
     Indication: BREAST CANCER
     Route: 065
  4. EPIRUBICIN [Suspect]
     Indication: BREAST CANCER
     Route: 065
  5. LAPATINIB [Suspect]
     Indication: BREAST CANCER
     Route: 065
  6. TAXOL [Suspect]
     Indication: BREAST CANCER
     Route: 065
  7. OXALIPLATIN [Suspect]
     Indication: BREAST CANCER
     Route: 065
  8. LETROZOLE [Suspect]
     Indication: BREAST CANCER
     Route: 065
  9. VINORELBINE [Suspect]
     Indication: BREAST CANCER
     Route: 065
  10. TAMOXIFEN [Suspect]
     Indication: BREAST CANCER
     Route: 065

REACTIONS (3)
  - Disease progression [Unknown]
  - Metastases to liver [Unknown]
  - Metastatic neoplasm [Unknown]
